FAERS Safety Report 20373245 (Version 2)
Quarter: 2022Q1

REPORT INFORMATION
  Report Type: Other
  Country: US (occurrence: None)
  Receive Date: 20220125
  Receipt Date: 20220126
  Transmission Date: 20220423
  Serious: No
  Sender: FDA-Public Use
  Company Number: US-ROCHE-3005389

PATIENT
  Age: 53 Year
  Sex: Female
  Weight: 81.720 kg

DRUGS (5)
  1. OCREVUS [Suspect]
     Active Substance: OCRELIZUMAB
     Indication: Relapsing-remitting multiple sclerosis
     Dosage: STARTED MAYBE 2 YEARS AGO ;ONGOING: YES
     Route: 042
  2. ROPINIROLE [Concomitant]
     Active Substance: ROPINIROLE
  3. TOPIRAMATE [Concomitant]
     Active Substance: TOPIRAMATE
  4. AMBIEN [Concomitant]
     Active Substance: ZOLPIDEM TARTRATE
  5. TIZANIDINE [Concomitant]
     Active Substance: TIZANIDINE

REACTIONS (2)
  - COVID-19 [Not Recovered/Not Resolved]
  - Depression [Unknown]

NARRATIVE: CASE EVENT DATE: 20211225
